FAERS Safety Report 15497829 (Version 5)
Quarter: 2019Q4

REPORT INFORMATION
  Report Type: Spontaneous
  Country: US (occurrence: US)
  Receive Date: 20181015
  Receipt Date: 20191118
  Transmission Date: 20200122
  Serious: No
  Sender: FDA-Public Use
  Company Number: US-PFIZER INC-2018402197

PATIENT
  Age: 3 Year
  Sex: Female

DRUGS (3)
  1. GENOTROPIN MQ [Suspect]
     Active Substance: SOMATROPIN
     Indication: SEPTO-OPTIC DYSPLASIA
     Dosage: 0.4 MG, DAILY
     Dates: start: 201806
  2. GENOTROPIN MQ [Suspect]
     Active Substance: SOMATROPIN
     Dosage: 0.8 MG, DAILY
  3. GENOTROPIN MQ [Suspect]
     Active Substance: SOMATROPIN
     Dosage: UNK, ALTERNATE DAY

REACTIONS (12)
  - Product use in unapproved indication [Unknown]
  - Blood growth hormone decreased [Unknown]
  - Off label use [Unknown]
  - Pain in extremity [Recovered/Resolved]
  - Intentional product misuse [Unknown]
  - Thyroxine free decreased [Unknown]
  - Product dose omission [Unknown]
  - Behaviour disorder [Recovered/Resolved]
  - Mood swings [Unknown]
  - Arthralgia [Unknown]
  - Gait disturbance [Unknown]
  - Abdominal pain upper [Unknown]

NARRATIVE: CASE EVENT DATE: 201811
